FAERS Safety Report 8290131-0 (Version None)
Quarter: 2012Q2

REPORT INFORMATION
  Report Type: 
  Country: None (occurrence: None)
  Receive Date: 20120417
  Receipt Date: 20120411
  Transmission Date: 20120825
  Serious: Yes (Hospitalization)
  Sender: FDA-Public Use
  Company Number: PHHY2012CH031241

PATIENT
  Age: 52 Year
  Sex: Male

DRUGS (5)
  1. ZOLEDRONOC ACID [Suspect]
     Indication: OSTEOPOROSIS
     Dosage: 5 MG, UNK
     Route: 042
     Dates: start: 20120131
  2. CALPEROS [Concomitant]
     Dosage: 2350 MG, DAILY
     Route: 048
  3. GLUCOPHAGE [Concomitant]
     Dosage: 500 MG, DAILY
     Route: 048
  4. CRESTOR [Concomitant]
     Dosage: 10 MG, DAILY
     Route: 048
  5. ENTOCORT EC [Concomitant]
     Indication: CROHN'S DISEASE
     Dosage: 3 MG, BID
     Route: 048

REACTIONS (3)
  - INSOMNIA [None]
  - TREMOR [None]
  - ANXIETY [None]
